FAERS Safety Report 11817911 (Version 3)
Quarter: 2017Q1

REPORT INFORMATION
  Report Type: Spontaneous
  Country: US (occurrence: US)
  Receive Date: 20151210
  Receipt Date: 20170309
  Transmission Date: 20170428
  Serious: No
  Sender: FDA-Public Use
  Company Number: US-JNJFOC-20151115017

PATIENT
  Sex: Male

DRUGS (3)
  1. INVEGA [Suspect]
     Active Substance: PALIPERIDONE
     Indication: PRODUCT USED FOR UNKNOWN INDICATION
     Route: 050
  2. RISPERDAL [Suspect]
     Active Substance: RISPERIDONE
     Indication: ARNOLD-CHIARI MALFORMATION
     Route: 048
     Dates: end: 2003
  3. RISPERDAL [Suspect]
     Active Substance: RISPERIDONE
     Indication: ARNOLD-CHIARI MALFORMATION
     Route: 048
     Dates: start: 2000

REACTIONS (4)
  - Product use issue [Unknown]
  - Abnormal weight gain [Unknown]
  - Gynaecomastia [Unknown]
  - Off label use [Unknown]

NARRATIVE: CASE EVENT DATE: 2000
